FAERS Safety Report 5700581-1 (Version None)
Quarter: 2008Q2

REPORT INFORMATION
  Report Type: 
  Country: None (occurrence: None)
  Receive Date: 20080409
  Receipt Date: 20080409
  Transmission Date: 20081010
  Serious: No
  Sender: FDA-Public Use
  Company Number: None

PATIENT
  Age: 20 Year
  Sex: Female
  Weight: 80.2867 kg

DRUGS (2)
  1. PAROXETINE HCL [Suspect]
     Indication: ANXIETY DISORDER
     Dosage: 30 MG ONCE QD PO
     Route: 048
     Dates: start: 20071215, end: 20080411
  2. PAROXETINE HCL [Suspect]
     Indication: DEPRESSION
     Dosage: 30 MG ONCE QD PO
     Route: 048
     Dates: start: 20071215, end: 20080411

REACTIONS (1)
  - TREMOR [None]
